FAERS Safety Report 19529220 (Version 1)
Quarter: 2021Q3

REPORT INFORMATION
  Report Type: Spontaneous
  Country: FR (occurrence: FR)
  Receive Date: 20210713
  Receipt Date: 20210713
  Transmission Date: 20211014
  Serious: Yes (Other)
  Sender: FDA-Public Use
  Company Number: FR-LEO PHARMA-337485

PATIENT
  Age: 92 Year
  Sex: Male

DRUGS (1)
  1. XAMIOL [Suspect]
     Active Substance: BETAMETHASONE DIPROPIONATE\CALCIPOTRIENE HYDRATE
     Indication: PRODUCT USED FOR UNKNOWN INDICATION
     Dosage: 50 MICROGRAM/0.5 MG/G,
     Route: 047
     Dates: start: 20210312, end: 20210312

REACTIONS (3)
  - Ulcerative keratitis [Not Recovered/Not Resolved]
  - Incorrect route of product administration [Unknown]
  - Wrong drug [Unknown]

NARRATIVE: CASE EVENT DATE: 20210312
